FAERS Safety Report 4841829-5 (Version None)
Quarter: 2005Q4

REPORT INFORMATION
  Report Type: 
  Country: None (occurrence: None)
  Receive Date: 20051125
  Receipt Date: 20051107
  Transmission Date: 20060501
  Serious: Yes (Death)
  Sender: FDA-Public Use
  Company Number: 2005-BP-19669RO

PATIENT
  Age: 39 Year
  Sex: Male

DRUGS (4)
  1. LORAZEPAM [Suspect]
  2. DIPHENOXYLATE HCL AND ATROPINE SULFATE ORAL SOLUTION USP (DIPHENY [Suspect]
  3. VENLAFAXINE HCL [Suspect]
  4. HYDROCODONE BITARTRATE [Concomitant]

REACTIONS (3)
  - MIOSIS [None]
  - MULTIPLE DRUG OVERDOSE [None]
  - RESPIRATORY DISORDER [None]
